FAERS Safety Report 4432728-1 (Version None)
Quarter: 2004Q3

REPORT INFORMATION
  Report Type: 
  Country: None (occurrence: None)
  Receive Date: 20040820
  Receipt Date: 20040809
  Transmission Date: 20050211
  Serious: Yes (Hospitalization)
  Sender: FDA-Public Use
  Company Number: 2004-DE-03225GD

PATIENT
  Age: 6 Year
  Sex: Male

DRUGS (1)
  1. IPRATROPIUM BROMIDE [Suspect]
     Indication: ASTHMA
     Dosage: IH
     Route: 055

REACTIONS (2)
  - MYDRIASIS [None]
  - PUPILS UNEQUAL [None]
